FAERS Safety Report 24539668 (Version 1)
Quarter: 2024Q4

REPORT INFORMATION
  Report Type: Spontaneous
  Country: CA (occurrence: CA)
  Receive Date: 20241023
  Receipt Date: 20241023
  Transmission Date: 20250114
  Serious: Yes (Other)
  Sender: TEVA
  Company Number: CA-TEVA-VS-3254676

PATIENT
  Age: 80 Year
  Sex: Female

DRUGS (6)
  1. PREGABALIN [Suspect]
     Active Substance: PREGABALIN
     Indication: Muscle disorder
     Route: 065
  2. PANTOPRAZOLE SODIUM [Concomitant]
     Active Substance: PANTOPRAZOLE SODIUM
     Indication: Product used for unknown indication
     Dosage: PANTOLOC /01263204/
     Route: 065
  3. POLYETHYLENE GLYCOL 3350 [Suspect]
     Active Substance: POLYETHYLENE GLYCOL 3350
     Indication: Constipation
     Dosage: DOSE FORM: POWDER FOR SOLUTION ORAL, DOSE:0.5 TEASPOONFUL
     Route: 065
  4. POLYETHYLENE GLYCOL 3350 [Suspect]
     Active Substance: POLYETHYLENE GLYCOL 3350
     Indication: Constipation
     Dosage: DOSE FORM: POWDER FOR SOLUTION ORAL, DOSE:0.25 TEASPOONFUL
     Route: 065
  5. POLYETHYLENE GLYCOL 3350 [Suspect]
     Active Substance: POLYETHYLENE GLYCOL 3350
     Indication: Constipation
     Dosage: DOSE FORM: POWDER FOR SOLUTION ORAL
     Route: 065
  6. POLYETHYLENE GLYCOL 3350 [Suspect]
     Active Substance: POLYETHYLENE GLYCOL 3350
     Indication: Constipation
     Dosage: DOSE FORM: POWDER FOR SOLUTION ORAL
     Route: 065

REACTIONS (7)
  - Diarrhoea [Unknown]
  - Muscle disorder [Unknown]
  - Burning sensation [Unknown]
  - Spinal cord herniation [Unknown]
  - Intentional product use issue [Unknown]
  - Duodenogastric reflux [Unknown]
  - Constipation [Unknown]
